FAERS Safety Report 6153773-4 (Version None)
Quarter: 2009Q2

REPORT INFORMATION
  Report Type: 
  Country: None (occurrence: None)
  Receive Date: 20090410
  Receipt Date: 20090402
  Transmission Date: 20091009
  Serious: Yes (Hospitalization)
  Sender: FDA-Public Use
  Company Number: 2009S1000106

PATIENT
  Age: 62 Year
  Sex: Female
  Weight: 88.4514 kg

DRUGS (12)
  1. SORIATANE [Suspect]
     Indication: PSORIASIS
     Dosage: 10 MG; QD; PO
     Route: 048
  2. HUMIRA [Suspect]
     Indication: PSORIASIS
     Dosage: 40 MG; QOW; SC
     Route: 058
     Dates: start: 20080501, end: 20080701
  3. HUMIRA [Suspect]
     Indication: PSORIASIS
     Dosage: 40 MG; QOW; SC
     Route: 058
     Dates: start: 20080801, end: 20081030
  4. METOPROLOL TARTRATE [Concomitant]
  5. SIMVASTATIN [Concomitant]
  6. GABAPENTIN [Concomitant]
  7. CYCLOBENZAPRINE [Concomitant]
  8. HYDROCHLORIDE [Concomitant]
  9. CLONAZEPAM [Concomitant]
  10. TRAZODONE HCL [Concomitant]
  11. METRONIDAZOLE [Concomitant]
  12. ACETYLSALICYLIC ACID SRT [Concomitant]

REACTIONS (3)
  - CLOSTRIDIUM DIFFICILE COLITIS [None]
  - PAIN IN EXTREMITY [None]
  - PEPTIC ULCER [None]
